FAERS Safety Report 19249445 (Version 2)
Quarter: 2021Q4

REPORT INFORMATION
  Report Type: Spontaneous
  Country: CA (occurrence: CA)
  Receive Date: 20210513
  Receipt Date: 20211029
  Transmission Date: 20220303
  Serious: Yes (Death, Hospitalization, Other)
  Sender: FDA-Public Use
  Company Number: CA-SAMSUNG BIOEPIS-SB-2021-11296

PATIENT
  Age: 70 Year
  Sex: Male

DRUGS (3)
  1. INFLIXIMAB [Suspect]
     Active Substance: INFLIXIMAB
     Indication: Crohn^s disease
     Route: 042
  2. INFLIXIMAB [Suspect]
     Active Substance: INFLIXIMAB
     Route: 042
  3. PREDNISONE [Concomitant]
     Active Substance: PREDNISONE
     Indication: Product used for unknown indication
     Route: 065

REACTIONS (23)
  - Death [Fatal]
  - Cardiac arrest [Fatal]
  - Condition aggravated [Fatal]
  - Dry skin [Fatal]
  - Eating disorder [Fatal]
  - Gait disturbance [Fatal]
  - Gastrointestinal disorder [Fatal]
  - Glaucoma [Fatal]
  - Hypotension [Fatal]
  - Malaise [Fatal]
  - Pallor [Fatal]
  - Peripheral swelling [Fatal]
  - Skin warm [Fatal]
  - Syncope [Fatal]
  - Tachycardia [Fatal]
  - Thrombosis [Fatal]
  - Upper gastrointestinal haemorrhage [Fatal]
  - Weight decreased [Fatal]
  - Product use issue [Fatal]
  - Off label use [Fatal]
  - Abdominal pain [Unknown]
  - Fistula [Unknown]
  - Loss of personal independence in daily activities [Unknown]
